FAERS Safety Report 20673438 (Version 1)
Quarter: 2022Q2

REPORT INFORMATION
  Report Type: Spontaneous
  Country: US (occurrence: None)
  Receive Date: 20220403
  Receipt Date: 20220403
  Transmission Date: 20220721
  Serious: Yes (Life-Threatening)
  Sender: FDA-Public Use
  Company Number: None

PATIENT
  Age: 85 Year
  Sex: Male
  Weight: 99 kg

DRUGS (1)
  1. IODIXANOL [Suspect]
     Active Substance: IODIXANOL
     Indication: Surgery
     Dosage: 60 ML ONCE   IV?
     Route: 042
     Dates: start: 20210803, end: 20210803

REACTIONS (2)
  - Angioedema [None]
  - Pain in jaw [None]

NARRATIVE: CASE EVENT DATE: 20210804
